FAERS Safety Report 22856688 (Version 2)
Quarter: 2023Q4

REPORT INFORMATION
  Report Type: Spontaneous
  Country: US (occurrence: US)
  Receive Date: 20230823
  Receipt Date: 20231002
  Transmission Date: 20240110
  Serious: No
  Sender: FDA-Public Use
  Company Number: US-ALKERMES INC.-ALK-2023-003399

PATIENT
  Age: 47 Year
  Sex: Female

DRUGS (23)
  1. ARISTADA [Suspect]
     Active Substance: ARIPIPRAZOLE LAUROXIL
     Indication: Schizophrenia
     Dosage: 882 MILLIGRAM, Q4WK
     Route: 030
     Dates: start: 2023
  2. LANTUS [Concomitant]
     Active Substance: INSULIN GLARGINE
     Indication: Product used for unknown indication
     Dosage: UNK
     Route: 065
  3. LANTUS SOLOSTAR [Concomitant]
     Active Substance: INSULIN GLARGINE
     Indication: Diabetes mellitus
     Dosage: 20 UNIT, QD
     Route: 058
     Dates: start: 2023
  4. HUMALOG [Concomitant]
     Active Substance: INSULIN LISPRO
     Indication: Diabetes mellitus
     Dosage: SLIDING DOSE UNIT, TID
     Route: 058
     Dates: start: 2023
  5. ATORVASTATIN [Concomitant]
     Active Substance: ATORVASTATIN
     Indication: Hyperlipidaemia
     Dosage: 10 MILLIGRAM, QD
     Route: 048
     Dates: start: 2023
  6. CALCIUM ACETATE [Concomitant]
     Active Substance: CALCIUM ACETATE
     Indication: Supplementation therapy
     Dosage: 600 MILLIGRAM TABLET
     Route: 048
     Dates: start: 2023
  7. CYCLOBENZAPRINE [Concomitant]
     Active Substance: CYCLOBENZAPRINE
     Indication: Back pain
     Dosage: 10 MILLIGRAM TABLET, QHS
     Route: 065
     Dates: start: 2023
  8. DEPAKOTE [Concomitant]
     Active Substance: DIVALPROEX SODIUM
     Indication: Schizoaffective disorder
     Dosage: 2, 500 MILLIGRAM TABLET, QD
     Route: 048
     Dates: start: 2023
  9. LAMOTRIGINE [Concomitant]
     Active Substance: LAMOTRIGINE
     Indication: Seizure
     Dosage: 100 MILLIGRAM TABLET, QAM
     Route: 048
     Dates: start: 2017
  10. LEVOTHYROXINE [Concomitant]
     Active Substance: LEVOTHYROXINE
     Indication: Hypothyroidism
     Dosage: 75 MICROGRAM, QD
     Route: 048
     Dates: start: 2017
  11. LORATADINE [Concomitant]
     Active Substance: LORATADINE
     Indication: Essential hypertension
     Dosage: 25 MILLIGRAM TABLET, QD
     Route: 048
     Dates: start: 2017
  12. LOSARTAN [Concomitant]
     Active Substance: LOSARTAN
     Indication: Product used for unknown indication
     Dosage: UNK
     Route: 065
  13. SENNA PLUS [SENNA ALEXANDRINA] [Concomitant]
     Indication: Constipation
     Dosage: 8.6 MG TO 50 MG, MILLIGRAM, TWICE QD
     Route: 048
     Dates: start: 2019
  14. IBUPROFEN [Concomitant]
     Active Substance: IBUPROFEN
     Indication: Pain
     Dosage: 600 MILLIGRAM, Q6H
     Route: 065
     Dates: start: 2018
  15. IBUPROFEN [Concomitant]
     Active Substance: IBUPROFEN
     Dosage: 600 MILLIGRAM, PRN
     Route: 065
     Dates: start: 2018
  16. TYLENOL [Concomitant]
     Active Substance: ACETAMINOPHEN
     Indication: Product used for unknown indication
     Dosage: UNK
     Route: 065
  17. ACETAMINOPHEN [Concomitant]
     Active Substance: ACETAMINOPHEN
     Indication: Foot deformity
     Dosage: 325 MILLIGRAM, PRN
     Route: 048
     Dates: start: 2023
  18. MILK OF MAGNESIA [Concomitant]
     Active Substance: MAGNESIUM HYDROXIDE
     Indication: Constipation
     Dosage: 30 MILLILITER, Q3D
     Route: 048
     Dates: start: 2017
  19. DEXTROSE [Concomitant]
     Active Substance: DEXTROSE\DEXTROSE MONOHYDRATE
     Indication: Diabetes mellitus
     Dosage: 15 GRAM, PRN
     Route: 048
     Dates: start: 2023
  20. BACITRACIN ZINC\GRAMICIDIN\POLYMYXIN B SULFATE [Concomitant]
     Active Substance: BACITRACIN ZINC\GRAMICIDIN\POLYMYXIN B SULFATE
     Indication: Wound
     Dosage: UNK, Q8H
     Route: 061
     Dates: start: 2017
  21. TUSSIN [DEXTROMETHORPHAN HYDROBROMIDE;GUAIFENESIN;PSEUDOEPHEDRINE HYDR [Concomitant]
     Indication: Cough
     Dosage: 10 MILLILITER, Q4H
     Route: 048
     Dates: start: 2017
  22. NYSTATIN [Concomitant]
     Active Substance: NYSTATIN
     Indication: Genital candidiasis
     Dosage: UNK UNK, QD
     Route: 061
     Dates: start: 2021
  23. VICKS VAPORUB [CAMPHOR;EUCALYPTUS GLOBULUS OIL;JUNIPERUS VIRGINIANA WO [Concomitant]
     Indication: Genital candidiasis
     Dosage: UNK, QD
     Route: 061
     Dates: start: 2021

REACTIONS (2)
  - Needle issue [Recovered/Resolved]
  - Product physical consistency issue [Recovered/Resolved]

NARRATIVE: CASE EVENT DATE: 20230815
